FAERS Safety Report 19775596 (Version 2)
Quarter: 2021Q4

REPORT INFORMATION
  Report Type: Spontaneous
  Country: PH (occurrence: PH)
  Receive Date: 20210901
  Receipt Date: 20211020
  Transmission Date: 20220303
  Serious: Yes (Other)
  Sender: FDA-Public Use
  Company Number: NVSC2021PH194733

PATIENT
  Age: 73 Year
  Sex: Male

DRUGS (3)
  1. SIMBRINZA [Suspect]
     Active Substance: BRIMONIDINE TARTRATE\BRINZOLAMIDE
     Indication: Product used for unknown indication
     Dosage: 1 DRP, BID
     Route: 047
     Dates: start: 20200305
  2. SIMBRINZA [Suspect]
     Active Substance: BRIMONIDINE TARTRATE\BRINZOLAMIDE
     Dosage: 1 DRP, BID
     Route: 047
     Dates: start: 20210624
  3. SIMBRINZA [Suspect]
     Active Substance: BRIMONIDINE TARTRATE\BRINZOLAMIDE
     Dosage: UNK UNK, TID

REACTIONS (4)
  - Glaucoma [Unknown]
  - Visual impairment [Recovered/Resolved]
  - Vision blurred [Unknown]
  - Visual acuity tests abnormal [Unknown]

NARRATIVE: CASE EVENT DATE: 20200305
